FAERS Safety Report 14210924 (Version 2)
Quarter: 2018Q1

REPORT INFORMATION
  Report Type: Spontaneous
  Country: DE (occurrence: DE)
  Receive Date: 20171121
  Receipt Date: 20180112
  Transmission Date: 20180508
  Serious: Yes (Hospitalization)
  Sender: FDA-Public Use
  Company Number: DE-NOVOPROD-573143

PATIENT
  Age: 46 Year
  Sex: Female
  Weight: 53 kg

DRUGS (1)
  1. NOVORAPID [Suspect]
     Active Substance: INSULIN ASPART
     Indication: DIABETES MELLITUS
     Dosage: 24 IU, QD
     Route: 058

REACTIONS (7)
  - Dyspnoea [Unknown]
  - Product leakage [Unknown]
  - Product container issue [Unknown]
  - Depression [Unknown]
  - Renal disorder [Unknown]
  - Blood glucose increased [Unknown]
  - Blood ketone body present [Unknown]

NARRATIVE: CASE EVENT DATE: 20171107
